FAERS Safety Report 21812609 (Version 4)
Quarter: 2023Q1

REPORT INFORMATION
  Report Type: Spontaneous
  Country: US (occurrence: US)
  Receive Date: 20230103
  Receipt Date: 20230119
  Transmission Date: 20230418
  Serious: Yes (Hospitalization, Other)
  Sender: FDA-Public Use
  Company Number: US-PFIZER INC-202201401854

PATIENT
  Age: 82 Year
  Sex: Male
  Weight: 88.9 kg

DRUGS (1)
  1. VYNDAMAX [Suspect]
     Active Substance: TAFAMIDIS
     Indication: Amyloidosis
     Dosage: 61 MG, 1X/DAY
     Route: 048
     Dates: end: 20221125

REACTIONS (13)
  - COVID-19 [Unknown]
  - Illness [Unknown]
  - Diabetes mellitus [Unknown]
  - Pneumonia [Unknown]
  - Ulcer haemorrhage [Unknown]
  - Haematochezia [Unknown]
  - Cardiac failure congestive [Unknown]
  - Condition aggravated [Unknown]
  - Diabetic complication [Unknown]
  - Hypoaesthesia [Unknown]
  - Pain in extremity [Unknown]
  - Asthenia [Unknown]
  - Respiration abnormal [Unknown]

NARRATIVE: CASE EVENT DATE: 20220101
